FAERS Safety Report 9517860 (Version 1)
Quarter: 2013Q3

REPORT INFORMATION
  Report Type: Spontaneous
  Country: US (occurrence: None)
  Receive Date: 20130910
  Receipt Date: 20130910
  Transmission Date: 20140515
  Serious: Yes (Disabling)
  Sender: FDA-Public Use
  Company Number: None

PATIENT
  Age: 84 Year
  Sex: Male
  Weight: 84.82 kg

DRUGS (9)
  1. DORZOLAMIDE/TIMOLOL [Suspect]
     Indication: GLAUCOMA
     Dates: start: 20130408, end: 20130602
  2. METHOTREXATE [Concomitant]
  3. TRAVATAN [Concomitant]
  4. PELOCARPINE [Concomitant]
  5. VITAMIN B12 [Concomitant]
  6. VITAMIN D [Concomitant]
  7. FOLIC ACID 800 [Concomitant]
  8. GARLIC [Concomitant]
  9. FLAX SEED [Concomitant]

REACTIONS (1)
  - Ill-defined disorder [None]
